FAERS Safety Report 16256203 (Version 1)
Quarter: 2019Q2

REPORT INFORMATION
  Report Type: Spontaneous
  Country: RU (occurrence: RU)
  Receive Date: 20190430
  Receipt Date: 20190430
  Transmission Date: 20190711
  Serious: Yes (Death, Hospitalization, Other)
  Sender: FDA-Public Use
  Company Number: RU-ASTRAZENECA-2019SE64457

PATIENT
  Age: 3 Month
  Sex: Male
  Weight: 4 kg

DRUGS (1)
  1. PULMICORT TURBUHALER [Suspect]
     Active Substance: BUDESONIDE
     Indication: OBSTRUCTIVE AIRWAYS DISORDER
     Route: 055

REACTIONS (4)
  - Candida infection [Unknown]
  - Death [Fatal]
  - Leukaemia [Unknown]
  - Off label use [Unknown]
